FAERS Safety Report 18732492 (Version 2)
Quarter: 2021Q3

REPORT INFORMATION
  Report Type: Report from Study
  Country: US (occurrence: US)
  Receive Date: 20210112
  Receipt Date: 20210721
  Transmission Date: 20211014
  Serious: Yes (Other)
  Sender: FDA-Public Use
  Company Number: US-JAZZ-2021-US-000203

PATIENT
  Sex: Male

DRUGS (4)
  1. XYREM [Suspect]
     Active Substance: SODIUM OXYBATE
     Indication: CATAPLEXY
     Dosage: DOSE ADJUSTMENT
     Route: 048
     Dates: start: 201003, end: 201401
  2. XYREM [Suspect]
     Active Substance: SODIUM OXYBATE
     Dosage: 4 GRAM, BID
     Route: 048
     Dates: start: 201401, end: 202101
  3. XYREM [Suspect]
     Active Substance: SODIUM OXYBATE
     Indication: NARCOLEPSY
     Dosage: 2.25 GRAM, BID
     Route: 048
     Dates: start: 2009, end: 201003
  4. VICKS NYQUIL [Concomitant]
     Active Substance: ACETAMINOPHEN\DEXTROMETHORPHAN HYDROBROMIDE\DOXYLAMINE SUCCINATE
     Indication: PRODUCT USED FOR UNKNOWN INDICATION

REACTIONS (3)
  - Myoclonus [Not Recovered/Not Resolved]
  - Blood pressure increased [Recovered/Resolved]
  - Conductive deafness [Unknown]
